FAERS Safety Report 25266912 (Version 1)
Quarter: 2025Q2

REPORT INFORMATION
  Report Type: Spontaneous
  Country: US (occurrence: US)
  Receive Date: 20250505
  Receipt Date: 20250505
  Transmission Date: 20250717
  Serious: Yes (Other)
  Sender: CIPLA
  Company Number: US-CIPLA (EU) LIMITED-2025US05104

PATIENT

DRUGS (7)
  1. ANASTROZOLE [Suspect]
     Active Substance: ANASTROZOLE
     Indication: Triple positive breast cancer
     Route: 065
  2. PARAPLATIN [Suspect]
     Active Substance: CARBOPLATIN
     Indication: Triple positive breast cancer
     Route: 065
  3. TAXOTERE [Suspect]
     Active Substance: DOCETAXEL
     Indication: Triple positive breast cancer
     Route: 065
  4. TRASTUZUMAB [Suspect]
     Active Substance: TRASTUZUMAB
     Indication: Triple positive breast cancer
     Route: 065
  5. PERTUZUMAB [Suspect]
     Active Substance: PERTUZUMAB
     Indication: Triple positive breast cancer
     Route: 065
  6. HERCEPTIN [Suspect]
     Active Substance: TRASTUZUMAB
     Indication: Triple positive breast cancer
     Route: 065
  7. PERJETA [Suspect]
     Active Substance: PERTUZUMAB
     Indication: Triple positive breast cancer
     Route: 065

REACTIONS (1)
  - Dermatomyositis [Recovering/Resolving]
